FAERS Safety Report 4512661-7 (Version None)
Quarter: 2004Q4

REPORT INFORMATION
  Report Type: 
  Country: None (occurrence: None)
  Receive Date: 20041012
  Receipt Date: 20040622
  Transmission Date: 20050328
  Serious: Yes (Other)
  Sender: FDA-Public Use
  Company Number: A03200402011

PATIENT
  Age: 64 Year
  Sex: Male

DRUGS (3)
  1. UROXATRAL [Suspect]
     Indication: BENIGN PROSTATIC HYPERPLASIA
     Dosage: 10 MG OD - ORAL
     Route: 048
     Dates: start: 20040609, end: 20040610
  2. UROXATRAL [Suspect]
     Indication: DYSURIA
     Dosage: 10 MG OD - ORAL
     Route: 048
     Dates: start: 20040609, end: 20040610
  3. CIPROFLOXACIN [Concomitant]

REACTIONS (7)
  - DIZZINESS [None]
  - HEADACHE [None]
  - HYPOTENSION [None]
  - NAUSEA [None]
  - SYNCOPE [None]
  - TONIC CLONIC MOVEMENTS [None]
  - VOMITING [None]
